FAERS Safety Report 4602149-7 (Version None)
Quarter: 2005Q2

REPORT INFORMATION
  Report Type: 
  Country: None (occurrence: None)
  Receive Date: 20050207
  Receipt Date: 20040212
  Transmission Date: 20051028
  Serious: Yes (Other)
  Sender: FDA-Public Use
  Company Number: HQ5550727NOV2002

PATIENT
  Age: 7 Year
  Sex: Male
  Weight: 22.5 kg

DRUGS (1)
  1. REFACTO [Suspect]
     Indication: HAEMOPHILIA
     Dosage: 500 IU EVERY OTHER DAY, INTRAVENOUS
     Route: 042
     Dates: start: 20020510, end: 20020716

REACTIONS (2)
  - DRUG SPECIFIC ANTIBODY PRESENT [None]
  - HAEMORRHAGE [None]
